FAERS Safety Report 9154691 (Version 1)
Quarter: 2013Q1

REPORT INFORMATION
  Report Type: Spontaneous
  Country: US (occurrence: None)
  Receive Date: 20130305
  Receipt Date: 20130305
  Transmission Date: 20140127
  Serious: No
  Sender: FDA-Public Use
  Company Number: None

PATIENT
  Age: 29 Year
  Sex: Female
  Weight: 49.9 kg

DRUGS (1)
  1. CYMBALTA [Suspect]

REACTIONS (10)
  - Restlessness [None]
  - Anxiety [None]
  - Nausea [None]
  - Insomnia [None]
  - Headache [None]
  - Vision blurred [None]
  - Diarrhoea [None]
  - Micturition frequency decreased [None]
  - Mydriasis [None]
  - Back pain [None]
